FAERS Safety Report 14365867 (Version 3)
Quarter: 2018Q1

REPORT INFORMATION
  Report Type: Spontaneous
  Country: CZ (occurrence: CZ)
  Receive Date: 20180109
  Receipt Date: 20180307
  Transmission Date: 20180509
  Serious: Yes (Other)
  Sender: FDA-Public Use
  Company Number: CZ-AXELLIA-001283

PATIENT
  Age: 60 Year
  Sex: Male

DRUGS (9)
  1. LINEZOLID. [Suspect]
     Active Substance: LINEZOLID
     Indication: ENDOCARDITIS
  2. AMPICILLIN SODIUM/SULBACTAM SODIUM [Suspect]
     Active Substance: AMPICILLIN SODIUM\SULBACTAM SODIUM
     Indication: ENDOCARDITIS
  3. GENTAMICIN. [Suspect]
     Active Substance: GENTAMICIN
     Indication: ENDOCARDITIS
  4. HEPARIN [Concomitant]
     Active Substance: HEPARIN SODIUM
     Indication: HAEMARTHROSIS
  5. ENOXAPARIN [Concomitant]
     Active Substance: ENOXAPARIN
     Indication: DEEP VEIN THROMBOSIS
     Dosage: 0.8 ML, BID
     Route: 058
  6. VANCOMYCIN [Suspect]
     Active Substance: VANCOMYCIN
     Indication: SALMONELLA TEST POSITIVE
     Dosage: DOSE 3 GM?1.5 G, Q12H
     Route: 042
  7. PIPERACILLIN SODIUM/TAZOBACTAM SODIUM [Suspect]
     Active Substance: PIPERACILLIN SODIUM\TAZOBACTAM SODIUM
     Indication: ENDOCARDITIS
  8. CIPROFLOXACIN. [Suspect]
     Active Substance: CIPROFLOXACIN
     Indication: ENDOCARDITIS
     Dosage: 500 MG, 3X/DAY (EVERY 8 HOURS)
     Route: 048
     Dates: start: 2017, end: 2017
  9. AMPICILLIN [Suspect]
     Active Substance: AMPICILLIN
     Indication: ENDOCARDITIS

REACTIONS (6)
  - Drug ineffective [Unknown]
  - Decreased appetite [Recovered/Resolved]
  - Weight decreased [Unknown]
  - Diarrhoea [Recovered/Resolved]
  - Hepatotoxicity [Recovered/Resolved]
  - Nutritional condition abnormal [Recovering/Resolving]

NARRATIVE: CASE EVENT DATE: 2017
